FAERS Safety Report 5515667-4 (Version None)
Quarter: 2007Q4

REPORT INFORMATION
  Report Type: 
  Country: None (occurrence: None)
  Receive Date: 20071113
  Receipt Date: 20070806
  Transmission Date: 20080405
  Serious: No
  Sender: FDA-Public Use
  Company Number: A0668389A

PATIENT
  Age: 48 Year
  Sex: Male

DRUGS (3)
  1. COREG [Suspect]
     Indication: CARDIOMYOPATHY
     Route: 048
     Dates: start: 20031001, end: 20070601
  2. COREG CR [Suspect]
     Indication: CARDIOMYOPATHY
     Dosage: 80MG PER DAY
     Route: 048
     Dates: start: 20070601, end: 20070701
  3. LISINOPRIL [Concomitant]
     Dosage: 5MG TWICE PER DAY

REACTIONS (2)
  - FATIGUE [None]
  - HYPOTENSION [None]
